FAERS Safety Report 18355163 (Version 1)
Quarter: 2020Q4

REPORT INFORMATION
  Report Type: Spontaneous
  Country: US (occurrence: US)
  Receive Date: 20201007
  Receipt Date: 20201007
  Transmission Date: 20210114
  Serious: No
  Sender: FDA-Public Use
  Company Number: US-SA-2020SA277186

PATIENT

DRUGS (1)
  1. DUPIXENT [Suspect]
     Active Substance: DUPILUMAB
     Indication: ECZEMA
     Dosage: 400 MG, 1X
     Route: 058
     Dates: start: 20200929, end: 20200929

REACTIONS (3)
  - Product use issue [Unknown]
  - Eczema [Unknown]
  - Rebound eczema [Unknown]

NARRATIVE: CASE EVENT DATE: 20200929
